FAERS Safety Report 14735746 (Version 1)
Quarter: 2018Q2

REPORT INFORMATION
  Report Type: Report from Study
  Country: CA (occurrence: CA)
  Receive Date: 20180409
  Receipt Date: 20180409
  Transmission Date: 20180711
  Serious: Yes (Hospitalization, Other)
  Sender: FDA-Public Use
  Company Number: CA-JNJFOC-20180404253

PATIENT
  Age: 16 Year
  Sex: Female
  Weight: 72.1 kg

DRUGS (1)
  1. REMICADE [Suspect]
     Active Substance: INFLIXIMAB
     Indication: COLITIS ULCERATIVE
     Dosage: STRENGTH = 100 MG MG
     Route: 042

REACTIONS (2)
  - Suicide attempt [Unknown]
  - Haematochezia [Unknown]

NARRATIVE: CASE EVENT DATE: 20180320
